FAERS Safety Report 18983780 (Version 1)
Quarter: 2021Q1

REPORT INFORMATION
  Report Type: Spontaneous
  Country: US (occurrence: US)
  Receive Date: 20210309
  Receipt Date: 20210309
  Transmission Date: 20210420
  Serious: No
  Sender: FDA-Public Use
  Company Number: US-ALK-ABELLO A/S-2021AA000568

PATIENT

DRUGS (13)
  1. STAE BULK 238 (CYNODON DACTYLON) [Suspect]
     Active Substance: CYNODON DACTYLON POLLEN
     Indication: PRODUCT USED FOR UNKNOWN INDICATION
     Dosage: UNK
     Route: 060
     Dates: start: 2017
  2. TAE BULK 1298 (QUERCUS RUBRA\QUERCUS ALBA\QUERCUS VIRGINIANA) [Suspect]
     Active Substance: QUERCUS ALBA POLLEN\QUERCUS RUBRA POLLEN\QUERCUS VIRGINIANA POLLEN
     Indication: PRODUCT USED FOR UNKNOWN INDICATION
     Dosage: UNK
     Route: 060
  3. TAE BULK 1143 (BETULA NIGRA) [Suspect]
     Active Substance: BETULA NIGRA POLLEN
     Indication: PRODUCT USED FOR UNKNOWN INDICATION
     Dosage: UNK
     Route: 060
     Dates: start: 2017
  4. TAE BULK 402 (ALTERNARIA ALTERNATA) [Suspect]
     Active Substance: ALTERNARIA ALTERNATA
     Indication: PRODUCT USED FOR UNKNOWN INDICATION
     Dosage: UNK
     Route: 060
     Dates: start: 2017
  5. TAE BULK 1151 (JUGLANS NIGRA) [Suspect]
     Active Substance: JUGLANS NIGRA POLLEN
     Indication: PRODUCT USED FOR UNKNOWN INDICATION
     Dosage: UNK
     Route: 060
     Dates: start: 2017
  6. TAE BULK 1158 (LIQUIDAMBAR STYRACIFLUA) [Suspect]
     Active Substance: LIQUIDAMBAR STYRACIFLUA POLLEN
     Indication: PRODUCT USED FOR UNKNOWN INDICATION
     Dosage: UNK
     Route: 060
     Dates: start: 2017
  7. DILUENT 50% GLYCERIN [Suspect]
     Active Substance: GLYCERIN
     Indication: PRODUCT USED FOR UNKNOWN INDICATION
     Dosage: UNK
     Route: 060
     Dates: start: 2017
  8. TAE BULK 168 FRAXINUS AMERICANA [Suspect]
     Active Substance: FRAXINUS AMERICANA POLLEN
     Indication: PRODUCT USED FOR UNKNOWN INDICATION
     Dosage: UNK
     Route: 060
     Dates: start: 2017
  9. TAE BULK 362 AMARANTHUS RETROFLEXUS [Suspect]
     Active Substance: AMARANTHUS RETROFLEXUS POLLEN
     Indication: PRODUCT USED FOR UNKNOWN INDICATION
     Dosage: UNK
     Dates: start: 2017
  10. STAE BULK 504 (DERMATOPHAGOIDES FARINAE) [Suspect]
     Active Substance: DERMATOPHAGOIDES FARINAE
     Indication: PRODUCT USED FOR UNKNOWN INDICATION
     Dosage: UNK
     Route: 060
     Dates: start: 2017
  11. TAE BULK 823 PERIPLANETA AMERICANA [Suspect]
     Active Substance: PERIPLANETA AMERICANA
     Indication: PRODUCT USED FOR UNKNOWN INDICATION
     Dosage: UNK
     Route: 060
     Dates: start: 2017
  12. TAE BULK 342 (PLANTAGO LANCEOLATA) [Suspect]
     Active Substance: PLANTAGO LANCEOLATA POLLEN
     Indication: PRODUCT USED FOR UNKNOWN INDICATION
     Dosage: UNK
     Route: 060
     Dates: start: 2017
  13. TAE BULK 411 (AUREOBASIDIUM PULLULANS) [Suspect]
     Active Substance: AUREOBASIDIUM PULLULANS VAR. PULLUTANS
     Indication: PRODUCT USED FOR UNKNOWN INDICATION
     Dosage: UNK
     Route: 060
     Dates: start: 2017

REACTIONS (4)
  - Off label use [Unknown]
  - Product odour abnormal [Recovered/Resolved]
  - Incorrect route of product administration [Unknown]
  - Product taste abnormal [Recovered/Resolved]
